FAERS Safety Report 6680169-9 (Version None)
Quarter: 2010Q2

REPORT INFORMATION
  Report Type: 
  Country: None (occurrence: None)
  Receive Date: 20100413
  Receipt Date: 20100401
  Transmission Date: 20101027
  Serious: Yes (Hospitalization)
  Sender: FDA-Public Use
  Company Number: FR-ELI_LILLY_AND_COMPANY-FR201001004626

PATIENT
  Age: 80 Year
  Sex: Female

DRUGS (5)
  1. CYMBALTA [Suspect]
     Indication: DEPRESSION
     Dosage: 60 MG, DAILY (1/D)
     Route: 048
     Dates: start: 20091224, end: 20091224
  2. PROPOFAN [Concomitant]
     Dosage: 6 D/F, DAILY (1/D)
     Route: 048
  3. SECALIP [Concomitant]
     Dosage: 300 MG, DAILY (1/D)
     Route: 048
  4. ASASANTINE [Concomitant]
     Dosage: 2 D/F, DAILY (1/D)
     Route: 048
  5. LEXOMIL [Concomitant]
     Dosage: 6 MG, DAILY (1/D)
     Route: 048

REACTIONS (2)
  - GENERAL PHYSICAL HEALTH DETERIORATION [None]
  - HYPONATRAEMIA [None]
